FAERS Safety Report 10489812 (Version 1)
Quarter: 2014Q4

REPORT INFORMATION
  Report Type: Spontaneous
  Country: US (occurrence: US)
  Receive Date: 20141002
  Receipt Date: 20141002
  Transmission Date: 20150528
  Serious: No
  Sender: FDA-Public Use
  Company Number: US-PFIZER INC-2014267928

PATIENT
  Age: 30 Year
  Sex: Female
  Weight: 58.96 kg

DRUGS (14)
  1. GABAPENTIN. [Suspect]
     Active Substance: GABAPENTIN
     Indication: PAIN
     Dosage: 3600 MG, 1X/DAY
     Route: 048
  2. GABAPENTIN. [Suspect]
     Active Substance: GABAPENTIN
     Indication: SHOCK
  3. GABAPENTIN. [Suspect]
     Active Substance: GABAPENTIN
     Indication: MUSCULOSKELETAL DISCOMFORT
  4. CANNABIS SATIVA SUBSP. SATIVA FLOWERING TOP [Concomitant]
     Active Substance: CANNABIS SATIVA SUBSP. SATIVA FLOWERING TOP
     Indication: NAUSEA
     Dosage: UNK
  5. GABAPENTIN. [Suspect]
     Active Substance: GABAPENTIN
     Indication: TREMOR
  6. DILANTIN [Suspect]
     Active Substance: PHENYTOIN
     Indication: NEURALGIA
     Dosage: 300 MG, 1X/DAY
     Route: 048
  7. DILANTIN [Suspect]
     Active Substance: PHENYTOIN
     Indication: TEMPERATURE INTOLERANCE
  8. DILANTIN [Suspect]
     Active Substance: PHENYTOIN
     Indication: TREMOR
  9. CANNABIS SATIVA SUBSP. SATIVA FLOWERING TOP [Concomitant]
     Active Substance: CANNABIS SATIVA SUBSP. SATIVA FLOWERING TOP
     Indication: PAIN
  10. DILANTIN [Suspect]
     Active Substance: PHENYTOIN
     Indication: MUSCULOSKELETAL DISCOMFORT
  11. COLACE [Concomitant]
     Active Substance: DOCUSATE SODIUM
     Indication: LAXATIVE SUPPORTIVE CARE
     Dosage: UNK
  12. GABAPENTIN. [Suspect]
     Active Substance: GABAPENTIN
     Indication: NEURALGIA
     Dosage: UNK
     Route: 048
  13. GABAPENTIN. [Suspect]
     Active Substance: GABAPENTIN
     Indication: TEMPERATURE INTOLERANCE
  14. DILANTIN [Suspect]
     Active Substance: PHENYTOIN
     Indication: PAIN

REACTIONS (24)
  - Pruritus generalised [Unknown]
  - Fatigue [Unknown]
  - Confusional state [Unknown]
  - Tremor [Unknown]
  - Contusion [Unknown]
  - Tendon disorder [Unknown]
  - Anaemia [Unknown]
  - Dyspnoea [Unknown]
  - Tooth loss [Unknown]
  - Migraine [Unknown]
  - Muscular weakness [Unknown]
  - Feeling of body temperature change [Unknown]
  - Anger [Unknown]
  - Dry mouth [Unknown]
  - Asthenia [Unknown]
  - Alopecia [Unknown]
  - Dry skin [Unknown]
  - Myalgia [Unknown]
  - Gait disturbance [Unknown]
  - Feeling abnormal [Unknown]
  - Gingival disorder [Unknown]
  - Drug ineffective [Unknown]
  - Nausea [Unknown]
  - Cognitive disorder [Unknown]
